FAERS Safety Report 6343168-2 (Version None)
Quarter: 2009Q3

REPORT INFORMATION
  Report Type: 
  Country: None (occurrence: None)
  Receive Date: 20090908
  Receipt Date: 20090827
  Transmission Date: 20100115
  Serious: Yes (Hospitalization)
  Sender: FDA-Public Use
  Company Number: BR-ASTRAZENECA-2009SE10403

PATIENT
  Age: 65 Year
  Sex: Male
  Weight: 76 kg

DRUGS (4)
  1. SELOZOK [Suspect]
     Indication: CARDIAC DISORDER
     Route: 048
     Dates: start: 20080501
  2. MONOCORDIL [Concomitant]
     Route: 048
     Dates: start: 20090401
  3. SIMVASTATIN [Concomitant]
     Indication: PROPHYLAXIS
     Route: 048
     Dates: start: 20090501
  4. ASPIRIN [Concomitant]
     Indication: ANTICOAGULANT THERAPY
     Route: 048
     Dates: start: 20080501

REACTIONS (7)
  - CARDIAC DISORDER [None]
  - DIZZINESS [None]
  - FEELING COLD [None]
  - MEMORY IMPAIRMENT [None]
  - PERIPHERAL COLDNESS [None]
  - RHINITIS [None]
  - WEIGHT INCREASED [None]
